FAERS Safety Report 5065342-8 (Version None)
Quarter: 2006Q3

REPORT INFORMATION
  Report Type: 
  Country: None (occurrence: None)
  Receive Date: 20060725
  Receipt Date: 20060719
  Transmission Date: 20061208
  Serious: Yes (Hospitalization)
  Sender: FDA-Public Use
  Company Number: A001-320-877

PATIENT
  Age: 74 Year
  Sex: Male
  Weight: 62 kg

DRUGS (6)
  1. DONEPEZIL HCL [Suspect]
     Indication: VASCULAR DEMENTIA
     Dosage: 5 MG, 1 IN 1 D; ORAL (SEE IMAGE)
     Route: 048
     Dates: start: 20050825, end: 20051021
  2. DONEPEZIL HCL [Suspect]
     Indication: VASCULAR DEMENTIA
     Dosage: 5 MG, 1 IN 1 D; ORAL (SEE IMAGE)
     Route: 048
     Dates: start: 20051022, end: 20060108
  3. DONEPEZIL HCL [Suspect]
     Indication: VASCULAR DEMENTIA
     Dosage: 5 MG, 1 IN 1 D; ORAL (SEE IMAGE)
     Route: 048
     Dates: start: 20060211
  4. DONEPEZIL HCL [Suspect]
     Indication: VASCULAR DEMENTIA
     Dosage: DOUBLEBLIND, 1 IN 1 D, ORAL
     Route: 048
     Dates: start: 20050216, end: 20050801
  5. ASPIRIN [Concomitant]
  6. NEUROBION FORTE (VITAMEDIN INTRAVENOUS) [Concomitant]

REACTIONS (6)
  - CEREBRAL INFARCTION [None]
  - CEREBROVASCULAR ACCIDENT [None]
  - FALL [None]
  - INFECTION [None]
  - NECROTISING FASCIITIS [None]
  - WOUND COMPLICATION [None]
